FAERS Safety Report 10178335 (Version 3)
Quarter: 2014Q2

REPORT INFORMATION
  Report Type: Spontaneous
  Country: JP (occurrence: JP)
  Receive Date: 20140519
  Receipt Date: 20140625
  Transmission Date: 20141212
  Serious: Yes (Death)
  Sender: FDA-Public Use
  Company Number: JP-UCBSA-121339

PATIENT
  Age: 88 Year
  Sex: Male

DRUGS (2)
  1. NEUPRO [Suspect]
     Indication: PARKINSON^S DISEASE
     Dosage: 2 MG, ONCE DAILY (QD)
     Route: 062
     Dates: start: 201404, end: 2014
  2. NEUPRO [Suspect]
     Dosage: 4 MG, ONCE DAILY (QD)
     Route: 062
     Dates: start: 201405, end: 201405

REACTIONS (1)
  - Sputum retention [Fatal]
